FAERS Safety Report 20665042 (Version 2)
Quarter: 2022Q2

REPORT INFORMATION
  Report Type: Report from Study
  Country: NL (occurrence: NL)
  Receive Date: 20220401
  Receipt Date: 20220503
  Transmission Date: 20220721
  Serious: Yes (Hospitalization, Disabling, Other)
  Sender: FDA-Public Use
  Company Number: NL-PFIZER INC-202200445606

PATIENT
  Age: 72 Year
  Sex: Male

DRUGS (8)
  1. CRIZOTINIB [Suspect]
     Active Substance: CRIZOTINIB
     Indication: Non-small cell lung cancer
     Dosage: 250 MG, 2X/DAY
     Route: 048
     Dates: start: 20211025
  2. CRIZOTINIB [Suspect]
     Active Substance: CRIZOTINIB
     Dosage: 250 MG, 2X/DAY
     Route: 048
     Dates: start: 20211217
  3. CRIZOTINIB [Suspect]
     Active Substance: CRIZOTINIB
     Dosage: 250 MG, 2X/DAY
     Route: 048
     Dates: start: 20220225
  4. CRIZOTINIB [Suspect]
     Active Substance: CRIZOTINIB
     Dosage: 250 MG, 2X/DAY
     Route: 048
     Dates: start: 20220323
  5. DALTEPARIN [Concomitant]
     Active Substance: DALTEPARIN
     Dosage: 15000 IE, 1X/DAY
     Dates: start: 20220320
  6. FENTANYL [Concomitant]
     Active Substance: FENTANYL
     Dosage: ONCE EVERY 3 DAYS, 25 MG
     Dates: start: 20220404
  7. PREGABALIN [Concomitant]
     Active Substance: PREGABALIN
     Dosage: 150 MG, 2X/DAY
     Dates: start: 20220216
  8. OMEPRAZOLE [Concomitant]
     Active Substance: OMEPRAZOLE
     Dosage: 20 MG, 1X/DAY
     Dates: start: 20220324

REACTIONS (3)
  - Malignant pleural effusion [Not Recovered/Not Resolved]
  - Pulmonary embolism [Unknown]
  - Chest pain [Not Recovered/Not Resolved]

NARRATIVE: CASE EVENT DATE: 20211217
